FAERS Safety Report 9824968 (Version 2)
Quarter: 2014Q1

REPORT INFORMATION
  Report Type: Spontaneous
  Country: GB (occurrence: GB)
  Receive Date: 20140117
  Receipt Date: 20140117
  Transmission Date: 20141002
  Serious: Yes (Hospitalization)
  Sender: FDA-Public Use
  Company Number: GB-AMGEN-GBRSP2013083233

PATIENT
  Sex: 0

DRUGS (4)
  1. XGEVA [Suspect]
     Indication: PRODUCT USED FOR UNKNOWN INDICATION
     Dosage: UNK
     Route: 065
     Dates: start: 2013
  2. CALCEOS [Concomitant]
     Dosage: UNK UNK, QD
  3. CALCIUM [Concomitant]
     Dosage: 500 MG, UNK
  4. VITAMIN D                          /00107901/ [Concomitant]
     Dosage: 400 IU, QD

REACTIONS (1)
  - Hypocalcaemia [Unknown]
